FAERS Safety Report 4640741-4 (Version None)
Quarter: 2005Q2

REPORT INFORMATION
  Report Type: 
  Country: None (occurrence: None)
  Receive Date: 20050322
  Receipt Date: 20040312
  Transmission Date: 20051028
  Serious: Yes (Hospitalization)
  Sender: FDA-Public Use
  Company Number: HQWYE844015MAR04

PATIENT
  Age: 78 Year
  Sex: Female
  Weight: 45.4 kg

DRUGS (4)
  1. PROTONIX [Suspect]
     Indication: GASTROOESOPHAGEAL REFLUX DISEASE
     Dosage: SEE IMAGE
     Route: 048
     Dates: start: 20031201, end: 20040101
  2. PROTONIX [Suspect]
     Indication: MALLORY-WEISS SYNDROME
     Dosage: SEE IMAGE
     Route: 048
     Dates: start: 20031201, end: 20040101
  3. PROTONIX [Suspect]
     Indication: GASTROOESOPHAGEAL REFLUX DISEASE
     Dosage: SEE IMAGE
     Route: 048
     Dates: start: 20040101
  4. PROTONIX [Suspect]
     Indication: MALLORY-WEISS SYNDROME
     Dosage: SEE IMAGE
     Route: 048
     Dates: start: 20040101

REACTIONS (4)
  - ABDOMINAL DISCOMFORT [None]
  - ANXIETY [None]
  - PNEUMONIA [None]
  - SLEEP DISORDER [None]
